FAERS Safety Report 5782185-8 (Version None)
Quarter: 2008Q2

REPORT INFORMATION
  Report Type: 
  Country: None (occurrence: None)
  Receive Date: 20080618
  Receipt Date: 20080604
  Transmission Date: 20081010
  Serious: Yes (Hospitalization, Other)
  Sender: FDA-Public Use
  Company Number: RENA-1000132

PATIENT
  Age: 19 Year
  Sex: Male

DRUGS (5)
  1. RENAGEL [Suspect]
     Indication: HYPERPHOSPHATAEMIA
     Dosage: TID, ORAL; TID, ORAL
     Route: 048
     Dates: end: 20070101
  2. RENAGEL [Suspect]
     Indication: HYPERPHOSPHATAEMIA
     Dosage: TID, ORAL; TID, ORAL
     Route: 048
     Dates: start: 20080501
  3. CINACALCET UNKNOWN [Concomitant]
  4. FOLIC ACID (FOLIC ACID) UNKNOWN [Concomitant]
  5. LANTHANUM CARBONATE (LANTHANUM CARBONATE) UNKNOWN [Concomitant]

REACTIONS (5)
  - DRUG INTERACTION [None]
  - DUODENAL ULCER HAEMORRHAGE [None]
  - GASTROINTESTINAL HAEMORRHAGE [None]
  - HAEMOGLOBIN DECREASED [None]
  - HELICOBACTER INFECTION [None]
